FAERS Safety Report 9369389 (Version 1)
Quarter: 2013Q2

REPORT INFORMATION
  Report Type: Spontaneous
  Country: US (occurrence: US)
  Receive Date: 20130626
  Receipt Date: 20130626
  Transmission Date: 20140414
  Serious: No
  Sender: FDA-Public Use
  Company Number: US-BAYER-2013-078170

PATIENT
  Age: 77 Year
  Sex: Male
  Weight: 98 kg

DRUGS (7)
  1. ALEVE CAPLET [Suspect]
     Indication: ARTHRITIS
     Dosage: 1 DF, QD
     Route: 048
     Dates: start: 201304
  2. NITROGLYCERIN [Concomitant]
  3. VITAMIN B12 [COBAMAMIDE] [Concomitant]
  4. CENTRUM SILVER [Concomitant]
  5. TYLENOL [PARACETAMOL] [Concomitant]
  6. ASPIRIN [Concomitant]
  7. BENADRYL [Concomitant]
     Dosage: 1/2 TABLET

REACTIONS (1)
  - Incorrect drug administration duration [None]
